FAERS Safety Report 24052644 (Version 2)
Quarter: 2025Q2

REPORT INFORMATION
  Report Type: Report from Study
  Country: US (occurrence: US)
  Receive Date: 20240705
  Receipt Date: 20250520
  Transmission Date: 20250716
  Serious: Yes (Other)
  Sender: AUROBINDO
  Company Number: US-AUROBINDO-AUR-APL-2024-032365

PATIENT
  Age: 61 Year
  Sex: Female

DRUGS (3)
  1. PREDNISONE [Suspect]
     Active Substance: PREDNISONE
     Indication: Haemophagocytic lymphohistiocytosis
     Route: 065
  2. ANAKINRA [Suspect]
     Active Substance: ANAKINRA
     Indication: Haemophagocytic lymphohistiocytosis
     Route: 065
  3. PEGINTERFERON ALFA-2A [Concomitant]
     Active Substance: PEGINTERFERON ALFA-2A
     Indication: Polycythaemia vera
     Route: 065
     Dates: start: 202201

REACTIONS (1)
  - Drug ineffective [Unknown]
